FAERS Safety Report 23515961 (Version 1)
Quarter: 2024Q1

REPORT INFORMATION
  Report Type: Spontaneous
  Country: US (occurrence: US)
  Receive Date: 20240213
  Receipt Date: 20240213
  Transmission Date: 20240410
  Serious: No
  Sender: FDA-Public Use
  Company Number: US-ACORDA-ACO_175623_2023

PATIENT
  Sex: Male

DRUGS (4)
  1. INBRIJA [Suspect]
     Active Substance: LEVODOPA
     Indication: Parkinson^s disease
     Dosage: 2 DOSAGE FORM, PRN, (NOT TO EXCEED 5 DOSES A DAY)
  2. INBRIJA [Suspect]
     Active Substance: LEVODOPA
     Indication: On and off phenomenon
  3. RYTARY [Concomitant]
     Active Substance: CARBIDOPA\LEVODOPA
     Indication: Product used for unknown indication
     Dosage: UNK
     Route: 065
  4. CARBIDOPA\LEVODOPA [Concomitant]
     Active Substance: CARBIDOPA\LEVODOPA
     Indication: Product used for unknown indication
     Dosage: 2 DOSAGE FORM, TID
     Route: 065

REACTIONS (9)
  - Device difficult to use [Unknown]
  - Muscular weakness [Not Recovered/Not Resolved]
  - Device issue [Unknown]
  - Disease progression [Not Recovered/Not Resolved]
  - Wrong technique in device usage process [Unknown]
  - Injury associated with device [Unknown]
  - Speech disorder [Not Recovered/Not Resolved]
  - Device defective [Unknown]
  - Musculoskeletal discomfort [Not Recovered/Not Resolved]
